FAERS Safety Report 17491673 (Version 1)
Quarter: 2020Q1

REPORT INFORMATION
  Report Type: Report from Study
  Country: US (occurrence: US)
  Receive Date: 20200304
  Receipt Date: 20200304
  Transmission Date: 20200409
  Serious: Yes (Hospitalization, Other)
  Sender: FDA-Public Use
  Company Number: US-BIOGEN-2020BI00843730

PATIENT
  Sex: Female

DRUGS (2)
  1. TECFIDERA [Suspect]
     Active Substance: DIMETHYL FUMARATE
     Indication: MULTIPLE SCLEROSIS
     Route: 065
     Dates: start: 20170921, end: 20171031
  2. TECFIDERA [Suspect]
     Active Substance: DIMETHYL FUMARATE
     Dosage: MAINTENANCE DOSE
     Route: 048
     Dates: start: 20180220, end: 202001

REACTIONS (5)
  - Cerebrovascular accident [Unknown]
  - Malaise [Unknown]
  - Blood iron decreased [Unknown]
  - Multiple sclerosis relapse [Unknown]
  - Optic neuritis [Unknown]

NARRATIVE: CASE EVENT DATE: 2019
